FAERS Safety Report 23902669 (Version 1)
Quarter: 2024Q2

REPORT INFORMATION
  Report Type: Spontaneous
  Country: AU (occurrence: AU)
  Receive Date: 20240527
  Receipt Date: 20240527
  Transmission Date: 20240715
  Serious: Yes (Other)
  Sender: FDA-Public Use
  Company Number: None

PATIENT
  Age: 50 Year
  Sex: Female

DRUGS (1)
  1. OLANZAPINE [Suspect]
     Active Substance: OLANZAPINE
     Indication: Korsakoff^s syndrome
     Dosage: 15 MG (INTERVAL: 1 DAY)
     Route: 048

REACTIONS (2)
  - Hyperglycaemia [Unknown]
  - Off label use [Unknown]
